FAERS Safety Report 5822392-9 (Version None)
Quarter: 2008Q3

REPORT INFORMATION
  Report Type: 
  Country: None (occurrence: None)
  Receive Date: 20080723
  Receipt Date: 20080723
  Transmission Date: 20090109
  Serious: No
  Sender: FDA-Public Use
  Company Number: None

PATIENT
  Sex: Male

DRUGS (2)
  1. EQUATE FACIAL CLEANSING TOWELETTES [Suspect]
     Dosage: 2 TOWELETTES TOPICAL
     Route: 061
     Dates: start: 20080611
  2. EQUATE FACIAL CLEANSING TOWELETTES [Suspect]
     Dosage: 2 TOWELETTES TOPICAL
     Route: 061
     Dates: start: 20080620

REACTIONS (4)
  - ERYTHEMA OF EYELID [None]
  - EYE PRURITUS [None]
  - EYE SWELLING [None]
  - EYELIDS PRURITUS [None]
